FAERS Safety Report 12849105 (Version 9)
Quarter: 2022Q1

REPORT INFORMATION
  Report Type: Report from Study
  Country: CA (occurrence: CA)
  Receive Date: 20161014
  Receipt Date: 20220322
  Transmission Date: 20220423
  Serious: Yes (Other)
  Sender: FDA-Public Use
  Company Number: CA-BRISTOL-MYERS SQUIBB COMPANY-BMS-2016-084065

PATIENT
  Age: 80 Year
  Sex: Female
  Weight: 76 kg

DRUGS (2)
  1. ABATACEPT [Suspect]
     Active Substance: ABATACEPT
     Indication: Rheumatoid arthritis
     Route: 042
     Dates: start: 20160921
  2. METFORMIN [Concomitant]
     Active Substance: METFORMIN HYDROCHLORIDE
     Indication: Product used for unknown indication
     Route: 065

REACTIONS (11)
  - Fall [Unknown]
  - Hypotension [Unknown]
  - Cataract [Unknown]
  - Arthropathy [Unknown]
  - Urinary incontinence [Unknown]
  - Headache [Unknown]
  - Drug ineffective [Not Recovered/Not Resolved]
  - Influenza [Unknown]
  - Pyrexia [Unknown]
  - Malaise [Unknown]
  - Blood pressure increased [Unknown]

NARRATIVE: CASE EVENT DATE: 20160921
